FAERS Safety Report 8251837-2 (Version None)
Quarter: 2012Q2

REPORT INFORMATION
  Report Type: 
  Country: None (occurrence: None)
  Receive Date: 20120402
  Receipt Date: 20120323
  Transmission Date: 20120825
  Serious: Yes (Other)
  Sender: FDA-Public Use
  Company Number: CA-ALLERGAN-1203719US

PATIENT
  Age: 39 Year
  Sex: Female

DRUGS (7)
  1. BOTULINUM TOXIN TYPE A [Suspect]
     Dosage: 15 UNITS, LEVATOR SCAPULAE
     Dates: start: 20120119, end: 20120119
  2. TYLENOL [Concomitant]
     Indication: PRODUCT USED FOR UNKNOWN INDICATION
  3. XYLOCAINE [Concomitant]
  4. BOTULINUM TOXIN TYPE A [Suspect]
     Indication: NECK PAIN
     Dosage: 10 UNITS MIDCERVICAL PARASPINALS
     Dates: start: 20120119, end: 20120119
  5. BOTULINUM TOXIN TYPE A [Suspect]
     Dosage: 15 UNITS, UPPER TRAPEZIUS
     Dates: start: 20120119, end: 20120119
  6. MULTI-VITAMINS [Concomitant]
  7. BOTULINUM TOXIN TYPE A [Suspect]
     Indication: BACK PAIN
     Dosage: 10 UNK, BILATERAL SUBOCCIPITATS
     Dates: start: 20120119, end: 20120119

REACTIONS (23)
  - MUSCULAR WEAKNESS [None]
  - ASTHENIA [None]
  - MOVEMENT DISORDER [None]
  - MUSCLE FATIGUE [None]
  - MUSCLE DISORDER [None]
  - PARALYSIS [None]
  - VISUAL ACUITY REDUCED [None]
  - PSYCHOMOTOR SKILLS IMPAIRED [None]
  - HEART RATE DECREASED [None]
  - ADVERSE DRUG REACTION [None]
  - SPEECH DISORDER [None]
  - FATIGUE [None]
  - PAIN [None]
  - FACIAL PARESIS [None]
  - FEELING DRUNK [None]
  - DYSPHAGIA [None]
  - DIZZINESS [None]
  - GASTROINTESTINAL MOTILITY DISORDER [None]
  - SENSATION OF HEAVINESS [None]
  - COUGH [None]
  - MUSCLE SPASMS [None]
  - DYSPNOEA [None]
  - DYSARTHRIA [None]
